FAERS Safety Report 8302349-9 (Version None)
Quarter: 2012Q2

REPORT INFORMATION
  Report Type: 
  Country: None (occurrence: None)
  Receive Date: 20120420
  Receipt Date: 20120410
  Transmission Date: 20120825
  Serious: Yes (Hospitalization)
  Sender: FDA-Public Use
  Company Number: FR-JNJFOC-20120407682

PATIENT
  Sex: Female

DRUGS (6)
  1. ACETAMINOPHEN [Concomitant]
     Route: 065
  2. POLYETHYLENE GLYCOL [Concomitant]
     Route: 065
  3. LORAZEPAM [Suspect]
     Indication: PRODUCT USED FOR UNKNOWN INDICATION
     Route: 048
     Dates: end: 20120220
  4. ZOLPIDEM [Suspect]
     Indication: PRODUCT USED FOR UNKNOWN INDICATION
     Route: 048
     Dates: end: 20120220
  5. TRAMADOL HCL [Suspect]
     Indication: PRODUCT USED FOR UNKNOWN INDICATION
     Route: 048
     Dates: end: 20120220
  6. ACTONEL [Concomitant]
     Route: 065

REACTIONS (2)
  - DISORIENTATION [None]
  - FALL [None]
